FAERS Safety Report 5841133-2 (Version None)
Quarter: 2008Q3

REPORT INFORMATION
  Report Type: 
  Country: None (occurrence: None)
  Receive Date: 20080811
  Receipt Date: 20080811
  Transmission Date: 20090109
  Serious: Yes (Hospitalization)
  Sender: FDA-Public Use
  Company Number: None

PATIENT
  Age: 77 Year
  Sex: Male
  Weight: 72.73 kg

DRUGS (2)
  1. SIMVASTATIN [Suspect]
     Dosage: 80 MG AT BEDTIME PO
     Route: 048
     Dates: start: 20020805, end: 20080511
  2. COLCHICINE [Suspect]
     Dosage: 0.6 MG OTHER PO
     Route: 048
     Dates: start: 20070702, end: 20080511

REACTIONS (5)
  - DYSPNOEA [None]
  - NAUSEA [None]
  - RENAL FAILURE ACUTE [None]
  - RHABDOMYOLYSIS [None]
  - VOMITING [None]
